FAERS Safety Report 5915932-2 (Version None)
Quarter: 2008Q4

REPORT INFORMATION
  Report Type: 
  Country: None (occurrence: None)
  Receive Date: 20081010
  Receipt Date: 20081002
  Transmission Date: 20090506
  Serious: Yes (Hospitalization)
  Sender: FDA-Public Use
  Company Number: US-MERCK-0809USA03684

PATIENT
  Age: 54 Year
  Sex: Female
  Weight: 108 kg

DRUGS (6)
  1. JANUMET [Suspect]
     Indication: DIABETES MELLITUS
     Route: 048
     Dates: start: 20071018, end: 20071022
  2. GLYBURIDE [Concomitant]
     Indication: DIABETES MELLITUS
     Route: 065
  3. LISINOPRIL [Concomitant]
     Indication: HYPERTENSION
     Route: 065
  4. PRAVACHOL [Concomitant]
     Indication: BLOOD CHOLESTEROL
     Route: 065
  5. ZETIA [Concomitant]
     Indication: BLOOD CHOLESTEROL
     Route: 048
  6. PROZAC [Concomitant]
     Indication: DEPRESSION
     Route: 065

REACTIONS (3)
  - CHEST PAIN [None]
  - DIZZINESS [None]
  - DYSPNOEA [None]
